FAERS Safety Report 23757988 (Version 3)
Quarter: 2024Q2

REPORT INFORMATION
  Report Type: Spontaneous
  Country: CH (occurrence: CH)
  Receive Date: 20240418
  Receipt Date: 20240624
  Transmission Date: 20240715
  Serious: Yes (Hospitalization, Other)
  Sender: FDA-Public Use
  Company Number: CH-002147023-NVSC2024CH033137

PATIENT
  Age: 23 Year
  Sex: Female
  Weight: 96 kg

DRUGS (10)
  1. SECUKINUMAB [Suspect]
     Active Substance: SECUKINUMAB
     Indication: Hidradenitis
     Dosage: UNK
     Route: 058
     Dates: start: 20220623
  2. DAFALGAN [Concomitant]
     Active Substance: ACETAMINOPHEN
     Indication: General physical condition
     Dosage: 1 G, PRN
     Route: 048
     Dates: start: 20200518
  3. IBUPROFEN [Concomitant]
     Active Substance: IBUPROFEN
     Indication: General physical condition
     Dosage: 400 MG, PRN
     Route: 048
     Dates: start: 20200625
  4. LUBEX [Concomitant]
     Indication: General physical condition
     Dosage: UNK, QD, (1 APPLICATION)
     Route: 061
     Dates: start: 20200723
  5. MOMETASONE FUROATE [Concomitant]
     Active Substance: MOMETASONE FUROATE
     Indication: Dermatitis contact
     Dosage: 1 MG, PRN
     Route: 061
     Dates: start: 20201112
  6. NEXIUM [Concomitant]
     Active Substance: ESOMEPRAZOLE MAGNESIUM
     Indication: Abdominal pain upper
     Dosage: 20 MG, QD
     Route: 048
     Dates: start: 20210209
  7. DIENOGEST\ETHINYL ESTRADIOL [Concomitant]
     Active Substance: DIENOGEST\ETHINYL ESTRADIOL
     Indication: General physical condition
     Dosage: 2 MG, QD
     Route: 048
     Dates: start: 20200515, end: 20220429
  8. DIENOGEST\ETHINYL ESTRADIOL [Concomitant]
     Active Substance: DIENOGEST\ETHINYL ESTRADIOL
     Dosage: 2 MG, QD
     Route: 048
     Dates: start: 20221229
  9. DUAC [Concomitant]
     Active Substance: BENZOYL PEROXIDE\CLINDAMYCIN PHOSPHATE
     Indication: Folliculitis
     Dosage: 1 APPLICATION, QD
     Route: 061
     Dates: start: 20221013, end: 20221117
  10. MALTOFERFOL [Concomitant]
     Indication: Iron deficiency
     Dosage: 100 MG, BID
     Route: 048
     Dates: start: 20211111, end: 20220210

REACTIONS (9)
  - Crohn^s disease [Not Recovered/Not Resolved]
  - Pyelonephritis [Recovered/Resolved]
  - COVID-19 [Recovered/Resolved]
  - SARS-CoV-2 test positive [Recovered/Resolved]
  - Amenorrhoea [Recovered/Resolved]
  - Ear infection viral [Recovered/Resolved]
  - Intermenstrual bleeding [Recovered/Resolved]
  - Infectious mononucleosis [Recovered/Resolved]
  - Diarrhoea [Recovering/Resolving]

NARRATIVE: CASE EVENT DATE: 20220727
